APPROVED DRUG PRODUCT: LORAZEPAM
Active Ingredient: LORAZEPAM
Strength: 0.5MG/5ML
Dosage Form/Route: SOLUTION;ORAL
Application: A074648 | Product #001
Applicant: ROXANE LABORATORIES INC
Approved: Mar 18, 1997 | RLD: No | RS: No | Type: DISCN